FAERS Safety Report 6006090-7 (Version None)
Quarter: 2008Q4

REPORT INFORMATION
  Report Type: 
  Country: None (occurrence: None)
  Receive Date: 20081217
  Receipt Date: 20081205
  Transmission Date: 20090506
  Serious: Yes (Other)
  Sender: FDA-Public Use
  Company Number: US-ELI_LILLY_AND_COMPANY-US200812001190

PATIENT
  Sex: Female

DRUGS (1)
  1. HUMATROPE [Suspect]
     Dosage: UNK, UNK
     Dates: start: 20050101

REACTIONS (7)
  - DRUG DOSE OMISSION [None]
  - EYE INFECTION [None]
  - FATIGUE [None]
  - LUNG NEOPLASM MALIGNANT [None]
  - MUSCLE DISORDER [None]
  - THROMBOSIS [None]
  - VISUAL ACUITY REDUCED [None]
